FAERS Safety Report 9387399 (Version 2)
Quarter: 2013Q4

REPORT INFORMATION
  Report Type: Spontaneous
  Country: US (occurrence: US)
  Receive Date: 20130708
  Receipt Date: 20131008
  Transmission Date: 20140711
  Serious: No
  Sender: FDA-Public Use
  Company Number: US-GLAXOSMITHKLINE-A1026164A

PATIENT
  Age: 33 Year
  Sex: Female
  Weight: 59.1 kg

DRUGS (2)
  1. POTIGA [Suspect]
     Indication: EPILEPSY
     Route: 048
  2. UNKNOWN [Concomitant]

REACTIONS (1)
  - Psychotic disorder [Recovering/Resolving]
